FAERS Safety Report 21821323 (Version 1)
Quarter: 2023Q1

REPORT INFORMATION
  Report Type: Report from Study
  Country: US (occurrence: US)
  Receive Date: 20230105
  Receipt Date: 20230105
  Transmission Date: 20230418
  Serious: Yes (Other)
  Sender: FDA-Public Use
  Company Number: US-CLOVIS ONCOLOGY-CLO-2022-001410

PATIENT
  Sex: Female

DRUGS (2)
  1. RUBRACA [Suspect]
     Active Substance: RUCAPARIB CAMSYLATE
     Indication: Ovarian cancer
     Dosage: ONE 300 MG TABLET IN THE MORNING, TWO 300 MG TABLETS IN THE EVENING
     Route: 048
     Dates: start: 20180418, end: 202207
  2. CITALOPRAM [Concomitant]
     Active Substance: CITALOPRAM HYDROBROMIDE
     Indication: Product used for unknown indication
     Dosage: UNK

REACTIONS (2)
  - Bone marrow disorder [Recovered/Resolved]
  - Haemoglobin decreased [Recovered/Resolved]
